FAERS Safety Report 7303573-4 (Version None)
Quarter: 2011Q1

REPORT INFORMATION
  Report Type: 
  Country: None (occurrence: None)
  Receive Date: 20110221
  Receipt Date: 20110217
  Transmission Date: 20110831
  Serious: Yes (Death)
  Sender: FDA-Public Use
  Company Number: PHHY2011BR13324

PATIENT
  Age: 64 Year
  Sex: Female

DRUGS (1)
  1. DIOVAN AMLO FIX [Suspect]
     Dosage: VALSARTAN 350MG AND AMLODIPINE 5MGPER DAY
     Route: 048

REACTIONS (1)
  - INFECTION [None]
